FAERS Safety Report 6300203-5 (Version None)
Quarter: 2009Q3

REPORT INFORMATION
  Report Type: 
  Country: None (occurrence: None)
  Receive Date: 20090806
  Receipt Date: 20090731
  Transmission Date: 20100115
  Serious: Yes (Death, Hospitalization)
  Sender: FDA-Public Use
  Company Number: US-GILEAD-2009-0023136

PATIENT
  Sex: Male

DRUGS (9)
  1. LETAIRIS [Suspect]
     Indication: PULMONARY ARTERIAL HYPERTENSION
     Route: 048
     Dates: start: 20080219, end: 20090701
  2. REMODULIN [Concomitant]
  3. LASIX [Concomitant]
  4. ALDACTONE [Concomitant]
  5. PROPRANOLOL [Concomitant]
  6. HUMALOG [Concomitant]
  7. XIFAXAN [Concomitant]
  8. ALLOPURINOL [Concomitant]
  9. CENTRUM SILVER [Concomitant]

REACTIONS (4)
  - DEATH [None]
  - FLUID OVERLOAD [None]
  - GASTROINTESTINAL DISORDER [None]
  - RENAL FAILURE ACUTE [None]
